FAERS Safety Report 7416832-1 (Version None)
Quarter: 2011Q2

REPORT INFORMATION
  Report Type: 
  Country: None (occurrence: None)
  Receive Date: 20110406
  Receipt Date: 20110328
  Transmission Date: 20111010
  Serious: Yes (Hospitalization)
  Sender: FDA-Public Use
  Company Number: 877273

PATIENT
  Age: 55 Year
  Sex: Female

DRUGS (8)
  1. MOTILIUM /00498201/) [Concomitant]
  2. (OXYNORM) [Concomitant]
  3. (LEVOTHYROX) [Concomitant]
  4. (RALTITREXED DISODIUM) [Suspect]
     Indication: RECTAL CANCER
     Dosage: INTRAVENOUS; 2ND ADMINISTRATION AT 50% OF THE DOSE INTRAVENOUS
     Route: 042
     Dates: start: 20100825, end: 20100825
  5. (RALTITREXED DISODIUM) [Suspect]
     Indication: RECTAL CANCER
     Dosage: INTRAVENOUS; 2ND ADMINISTRATION AT 50% OF THE DOSE INTRAVENOUS
     Route: 042
     Dates: start: 20100804, end: 20100804
  6. OXALIPLATIN [Suspect]
     Indication: RECTAL CANCER
     Dosage: INTRAVENOUS
     Route: 042
     Dates: start: 20100825
  7. OXALIPLATIN [Suspect]
     Indication: RECTAL CANCER
     Dosage: INTRAVENOUS
     Route: 042
     Dates: start: 20100804
  8. (OXYCONTIN) [Concomitant]

REACTIONS (6)
  - PANCYTOPENIA [None]
  - LYMPHOEDEMA [None]
  - ASTHENIA [None]
  - PETECHIAE [None]
  - RECTAL HAEMORRHAGE [None]
  - GENERAL PHYSICAL HEALTH DETERIORATION [None]
